FAERS Safety Report 9160046 (Version 1)
Quarter: 2013Q1

REPORT INFORMATION
  Report Type: Spontaneous
  Country: US (occurrence: None)
  Receive Date: 20130214
  Receipt Date: 20130214
  Transmission Date: 20140127
  Serious: Yes (Hospitalization)
  Sender: FDA-Public Use
  Company Number: VAL_01392_2013

PATIENT
  Age: 6 Year
  Sex: Female
  Weight: 23 kg

DRUGS (18)
  1. CALCITRIOL [Suspect]
     Indication: HYPERPARATHYROIDISM
     Route: 048
     Dates: start: 20090529, end: 20101213
  2. ALBUTEROL [Concomitant]
  3. FERRIYS SULFATE [Concomitant]
  4. FLUCONAZOLE [Concomitant]
  5. VANCOMYCIN [Concomitant]
  6. CINACALCET HYDROCHLORIDE [Concomitant]
  7. EPOETIN ALFA [Concomitant]
  8. METRONIDAZONE BENZOATE [Concomitant]
  9. RANITIDINE HYDROCHLORIDE [Concomitant]
  10. WOOL FAT [Concomitant]
  11. SEVELAMER CARBONATE [Concomitant]
  12. BACTRIM [Concomitant]
  13. METRONIDAZOLE [Concomitant]
  14. SODIUM POLYSTYRENE SULFONATE [Concomitant]
  15. GENTAMICIN [Concomitant]
  16. ESOMEPRAZONE SODIUM [Concomitant]
  17. PHOS-NAK [Concomitant]
  18. PARACETAMOL [Concomitant]

REACTIONS (5)
  - Device leakage [None]
  - Abdominal pain [None]
  - Pseudomonas test positive [None]
  - Device occlusion [None]
  - Serratia test positive [None]
